FAERS Safety Report 25037728 (Version 1)
Quarter: 2025Q1

REPORT INFORMATION
  Report Type: Spontaneous
  Country: US (occurrence: None)
  Receive Date: 20250304
  Receipt Date: 20250304
  Transmission Date: 20250408
  Serious: Yes (Other)
  Sender: FDA-CTU
  Company Number: None

PATIENT
  Age: 62 Year
  Sex: Female
  Weight: 56.25 kg

DRUGS (1)
  1. GAMMAGARD LIQUID [Suspect]
     Active Substance: HUMAN IMMUNOGLOBULIN G
     Indication: Polyneuropathy
     Route: 042
     Dates: start: 20230717

REACTIONS (6)
  - Feeling abnormal [None]
  - Infusion related reaction [None]
  - Malaise [None]
  - Vomiting [None]
  - Dizziness [None]
  - Chest pain [None]

NARRATIVE: CASE EVENT DATE: 20250224
